FAERS Safety Report 4717032-6 (Version None)
Quarter: 2005Q3

REPORT INFORMATION
  Report Type: 
  Country: None (occurrence: None)
  Receive Date: 20050719
  Receipt Date: 20050614
  Transmission Date: 20060218
  Serious: Yes (Hospitalization)
  Sender: FDA-Public Use
  Company Number: US-ROCHE-407835

PATIENT
  Age: 40 Year
  Sex: Male
  Weight: 116.1 kg

DRUGS (4)
  1. PEG-INTERFERON ALFA 2A (RO 25-8310) [Suspect]
     Route: 058
     Dates: start: 20050131, end: 20050214
  2. RIBAVIRIN [Suspect]
     Route: 048
     Dates: start: 20050131, end: 20050214
  3. ALEVE [Concomitant]
     Indication: MYALGIA
     Dates: start: 20010101
  4. ANTIFUNGAL DRUG NOS [Concomitant]
     Route: 061
     Dates: start: 20050215

REACTIONS (7)
  - CHOLELITHIASIS [None]
  - ERYTHEMA MULTIFORME [None]
  - INJECTION SITE RASH [None]
  - SELF-MEDICATION [None]
  - STEVENS-JOHNSON SYNDROME [None]
  - SUNBURN [None]
  - URTICARIA [None]
